FAERS Safety Report 5278197-3 (Version None)
Quarter: 2007Q1

REPORT INFORMATION
  Report Type: 
  Country: None (occurrence: None)
  Receive Date: 20061213
  Receipt Date: 20060522
  Transmission Date: 20070707
  Serious: Yes (Hospitalization)
  Sender: FDA-Public Use
  Company Number: 2006UW10094

PATIENT
  Age: 58 Year
  Sex: Male

DRUGS (5)
  1. SEROQUEL [Suspect]
     Dosage: 100 MG PO
     Route: 048
     Dates: start: 20020501, end: 20030201
  2. SEROQUEL [Suspect]
     Dosage: 300 MG PO
     Route: 048
     Dates: start: 20030201, end: 20060101
  3. SEROQUEL [Suspect]
     Dosage: 100 MG PO
     Route: 048
     Dates: start: 20060501
  4. ELAVIL [Concomitant]
  5. STELAZINE [Concomitant]

REACTIONS (1)
  - RECTAL HAEMORRHAGE [None]
